FAERS Safety Report 10560260 (Version 1)
Quarter: 2014Q4

REPORT INFORMATION
  Report Type: Spontaneous
  Country: US (occurrence: None)
  Receive Date: 20141031
  Receipt Date: 20141031
  Transmission Date: 20150529
  Serious: Yes (Other)
  Sender: FDA-Public Use
  Company Number: None

PATIENT
  Age: 72 Year
  Sex: Male
  Weight: 86 kg

DRUGS (1)
  1. ASENAPINE [Suspect]
     Active Substance: ASENAPINE
     Route: 060
     Dates: start: 20140522, end: 20140523

REACTIONS (8)
  - Dyspnoea [None]
  - Delirium [None]
  - Stridor [None]
  - Hallucination, visual [None]
  - Anxiety [None]
  - Aggression [None]
  - Tachypnoea [None]
  - Agitation [None]

NARRATIVE: CASE EVENT DATE: 20140523
